FAERS Safety Report 19599179 (Version 1)
Quarter: 2021Q3

REPORT INFORMATION
  Report Type: Spontaneous
  Country: US (occurrence: US)
  Receive Date: 20210723
  Receipt Date: 20210723
  Transmission Date: 20211014
  Serious: Yes (Death)
  Sender: FDA-Public Use
  Company Number: None

PATIENT
  Age: 84 Year
  Sex: Male

DRUGS (12)
  1. ELIQUIS [Concomitant]
     Active Substance: APIXABAN
  2. FEROSUL [Concomitant]
     Active Substance: FERROUS SULFATE
  3. LACTULOSE. [Concomitant]
     Active Substance: LACTULOSE
  4. METOLAZONE. [Concomitant]
     Active Substance: METOLAZONE
  5. DOXYCYCL HYC [Concomitant]
     Active Substance: DOXYCYCLINE HYCLATE
  6. TEMAZEPAM. [Concomitant]
     Active Substance: TEMAZEPAM
  7. TORSEMIDE. [Concomitant]
     Active Substance: TORSEMIDE
  8. MUPIROCIN. [Concomitant]
     Active Substance: MUPIROCIN
  9. SMZ?TMP DS [Concomitant]
     Active Substance: SULFAMETHOXAZOLE\TRIMETHOPRIM
  10. LINZESS [Concomitant]
     Active Substance: LINACLOTIDE
  11. DIVALOPREX [Concomitant]
     Active Substance: DIVALPROEX SODIUM
  12. VYNDAMAX [Suspect]
     Active Substance: TAFAMIDIS
     Indication: AMYLOIDOSIS
     Route: 048
     Dates: start: 20210325, end: 20210721

REACTIONS (1)
  - Death [None]

NARRATIVE: CASE EVENT DATE: 20210721
